FAERS Safety Report 21388554 (Version 3)
Quarter: 2025Q3

REPORT INFORMATION
  Report Type: Spontaneous
  Country: EU (occurrence: EU)
  Receive Date: 20220928
  Receipt Date: 20250919
  Transmission Date: 20251021
  Serious: Yes (Other)
  Sender: GILEAD
  Company Number: None

PATIENT
  Age: 41 Year
  Sex: Male
  Weight: 69 kg

DRUGS (9)
  1. ODEFSEY [Suspect]
     Active Substance: EMTRICITABINE\RILPIVIRINE HYDROCHLORIDE\TENOFOVIR ALAFENAMIDE FUMARATE
     Indication: HIV infection
     Dosage: 200 MG/25 MG/25 MG, COMPRIM? PELLICUL?
     Route: 048
     Dates: start: 20190705
  2. AMITRIPTYLINE HYDROCHLORIDE [Concomitant]
     Active Substance: AMITRIPTYLINE HYDROCHLORIDE
     Indication: Postoperative analgesia
     Dosage: 40 MG/ML, SOLUTION BUVABLE
     Route: 048
     Dates: start: 20210414
  3. FLUTICASONE FUROATE\VILANTEROL TRIFENATATE [Concomitant]
     Active Substance: FLUTICASONE FUROATE\VILANTEROL TRIFENATATE
     Indication: Asthma
  4. RACECADOTRIL [Concomitant]
     Active Substance: RACECADOTRIL
     Indication: Diarrhoea
  5. ALBUTEROL SULFATE [Concomitant]
     Active Substance: ALBUTEROL SULFATE
     Indication: Asthma
  6. SKENAN [Concomitant]
     Active Substance: MORPHINE SULFATE
     Indication: Postoperative analgesia
     Dosage: 10 MG, MICROGRANULES ? LIB?RATION PROLONG?E EN G?LULE
     Route: 048
     Dates: start: 20190118
  7. CHOLECALCIFEROL [Concomitant]
     Active Substance: CHOLECALCIFEROL
     Indication: Product used for unknown indication
  8. AERIUS (DESLORATADINE) [Concomitant]
     Active Substance: DESLORATADINE
     Indication: Asthma
     Dosage: 5 MG, COMPRIM? PELLICUL?
     Route: 048
  9. MORPHINE SULFATE [Concomitant]
     Active Substance: MORPHINE SULFATE
     Indication: Postoperative analgesia
     Dates: start: 20191018

REACTIONS (2)
  - Hepatic cytolysis [Recovered/Resolved]
  - Hepatic cytolysis [Unknown]

NARRATIVE: CASE EVENT DATE: 20190726
